FAERS Safety Report 19095240 (Version 8)
Quarter: 2021Q2

REPORT INFORMATION
  Report Type: Report from Study
  Country: CA (occurrence: CA)
  Receive Date: 20210406
  Receipt Date: 20210527
  Transmission Date: 20210717
  Serious: Yes (Hospitalization)
  Sender: FDA-Public Use
  Company Number: CA-ROCHE-2800622

PATIENT
  Age: 55 Year
  Sex: Male
  Weight: 106.7 kg

DRUGS (18)
  1. CBD OIL [Concomitant]
     Active Substance: CANNABIDIOL\HERBALS
     Indication: INSOMNIA
     Route: 048
     Dates: start: 201910
  2. NIVOLUMAB [Concomitant]
     Active Substance: NIVOLUMAB
     Dates: start: 201911
  3. NAPROXEN. [Concomitant]
     Active Substance: NAPROXEN
     Indication: ARTHRALGIA
     Route: 048
     Dates: start: 20210312, end: 20210407
  4. RO?7296682. [Suspect]
     Active Substance: RO-7296682
     Indication: NEOPLASM
     Dosage: MOST RECENT DOSE RECEIVED PRIOR TO AE/SAE ONSET: 24/MAR/2021, FROM 03:58 PM TO 07:58 PM
     Route: 042
     Dates: start: 20210324
  5. RO?7296682. [Suspect]
     Active Substance: RO-7296682
     Indication: METASTATIC NEOPLASM
  6. PANTOPRAZOLE [Concomitant]
     Active Substance: PANTOPRAZOLE
     Route: 048
     Dates: start: 202009
  7. CETIRIZINE [Concomitant]
     Active Substance: CETIRIZINE HYDROCHLORIDE
     Indication: HYPERSENSITIVITY
     Dosage: DOSE 20 AND UNIT OTHER
     Route: 048
  8. BETADERM [Concomitant]
     Active Substance: BETAMETHASONE VALERATE
     Indication: RASH MACULO-PAPULAR
     Route: 061
     Dates: start: 20210324, end: 20210324
  9. ACETAMINOPHEN. [Concomitant]
     Active Substance: ACETAMINOPHEN
     Indication: MUSCULOSKELETAL STIFFNESS
     Dosage: DOSE 1000 AND UNIT OTHER
     Route: 048
  10. BENADRYL [Concomitant]
     Active Substance: DIPHENHYDRAMINE HYDROCHLORIDE
     Indication: PRURITUS
     Route: 042
     Dates: start: 20210324
  11. BETADERM [Concomitant]
     Active Substance: BETAMETHASONE VALERATE
     Indication: RASH
     Route: 061
     Dates: start: 20210324
  12. TYLENOL [Concomitant]
     Active Substance: ACETAMINOPHEN
     Indication: ARTHRALGIA
  13. ATEZOLIZUMAB. [Suspect]
     Active Substance: ATEZOLIZUMAB
     Indication: NEOPLASM
     Dosage: MOST RECENT DOSE RECEIVED PRIOR TO AE/SAE ONSET: 24/MAR/2021, FROM 12:58 PM TO 01:58 PM
     Route: 041
     Dates: start: 20210324
  14. ATEZOLIZUMAB. [Suspect]
     Active Substance: ATEZOLIZUMAB
     Indication: METASTATIC NEOPLASM
  15. IPILIMUMAB [Concomitant]
     Active Substance: IPILIMUMAB
     Dates: start: 201911
  16. ACETAMINOPHEN. [Concomitant]
     Active Substance: ACETAMINOPHEN
     Indication: ARTHRALGIA
     Route: 048
     Dates: start: 20210327, end: 20210407
  17. BENADRYL [Concomitant]
     Active Substance: DIPHENHYDRAMINE HYDROCHLORIDE
     Indication: RASH MACULO-PAPULAR
     Route: 042
     Dates: start: 20210324, end: 20210324
  18. TYLENOL [Concomitant]
     Active Substance: ACETAMINOPHEN
     Indication: NECK PAIN
     Route: 048
     Dates: start: 20210327, end: 20210407

REACTIONS (1)
  - Diarrhoea [Recovered/Resolved]

NARRATIVE: CASE EVENT DATE: 20210327
